FAERS Safety Report 6241920-5 (Version None)
Quarter: 2009Q2

REPORT INFORMATION
  Report Type: 
  Country: None (occurrence: None)
  Receive Date: 20090622
  Receipt Date: 20090605
  Transmission Date: 20091009
  Serious: Yes (Other)
  Sender: FDA-Public Use
  Company Number: 2009S1004679

PATIENT
  Sex: Female

DRUGS (1)
  1. PHOSPHOSODA FLAVOR NOT SPECIFIED [Suspect]
     Indication: COLONOSCOPY
     Dosage: ; PO
     Route: 048
     Dates: start: 20020410, end: 20020410

REACTIONS (2)
  - DYSGEUSIA [None]
  - RENAL FAILURE ACUTE [None]
